FAERS Safety Report 17022386 (Version 4)
Quarter: 2020Q1

REPORT INFORMATION
  Report Type: Report from Study
  Country: US (occurrence: US)
  Receive Date: 20191112
  Receipt Date: 20200314
  Transmission Date: 20200409
  Serious: Yes (Hospitalization, Other)
  Sender: FDA-Public Use
  Company Number: US-ACTELION-A-NJ2017-161812

PATIENT
  Sex: Female
  Weight: 88.44 kg

DRUGS (3)
  1. OPSUMIT [Suspect]
     Active Substance: MACITENTAN
     Dosage: UNK
     Route: 048
  2. OPSUMIT [Suspect]
     Active Substance: MACITENTAN
     Indication: PULMONARY ARTERIAL HYPERTENSION
     Dosage: 10 MG, QD
     Route: 048
  3. REVATIO [Concomitant]
     Active Substance: SILDENAFIL CITRATE

REACTIONS (32)
  - Postural orthostatic tachycardia syndrome [Unknown]
  - Fatigue [Unknown]
  - Dyspnoea [Not Recovered/Not Resolved]
  - Lower limb fracture [Unknown]
  - Pain [Unknown]
  - Influenza [Unknown]
  - Loss of consciousness [Unknown]
  - Oedema peripheral [Unknown]
  - Nausea [Unknown]
  - Barrel chest [Unknown]
  - Tachycardia paroxysmal [Unknown]
  - Fall [Unknown]
  - Anaemia [Unknown]
  - Condition aggravated [Unknown]
  - Exercise tolerance decreased [Unknown]
  - Oedema [Unknown]
  - Fractured sacrum [Unknown]
  - Sinusitis [Not Recovered/Not Resolved]
  - Fluid retention [Unknown]
  - Malaise [Unknown]
  - Syncope [Unknown]
  - Chest pain [Not Recovered/Not Resolved]
  - Nasal congestion [Unknown]
  - Dizziness [Unknown]
  - Migraine [Unknown]
  - Weight increased [Unknown]
  - Skin exfoliation [Unknown]
  - Pleural effusion [Unknown]
  - Depressed mood [Unknown]
  - Pulmonary arterial pressure increased [Unknown]
  - Heart rate increased [Not Recovered/Not Resolved]
  - Fracture [Unknown]
